FAERS Safety Report 16564997 (Version 1)
Quarter: 2019Q3

REPORT INFORMATION
  Report Type: Spontaneous
  Country: US (occurrence: US)
  Receive Date: 20190711
  Receipt Date: 20190711
  Transmission Date: 20191004
  Serious: No
  Sender: FDA-Public Use
  Company Number: None

PATIENT
  Age: 76 Year
  Sex: Female
  Weight: 68.04 kg

DRUGS (1)
  1. BRILLIANT BLUE 0.5MG/ML 1 ML VIAL [Suspect]
     Active Substance: BRILLIANT BLUE
     Indication: RETINAL OPERATION
     Dosage: ?          OTHER ROUTE:INTRAVITREAL?
     Dates: start: 20190404

REACTIONS (4)
  - Eye inflammation [None]
  - Post procedural inflammation [None]
  - Endophthalmitis [None]
  - Retinopexy [None]

NARRATIVE: CASE EVENT DATE: 20190404
